FAERS Safety Report 14282519 (Version 2)
Quarter: 2018Q2

REPORT INFORMATION
  Report Type: Spontaneous
  Country: US (occurrence: US)
  Receive Date: 20171213
  Receipt Date: 20180510
  Transmission Date: 20180711
  Serious: No
  Sender: FDA-Public Use
  Company Number: US-MALLINCKRODT-T201701243

PATIENT
  Age: 57 Year
  Sex: Male
  Weight: 109 kg

DRUGS (4)
  1. METHADONE [Suspect]
     Active Substance: METHADONE HYDROCHLORIDE
     Indication: PAIN
     Dosage: 10 MG, QID
     Route: 048
     Dates: start: 20170313
  2. FENTANYL TRANSDERMAL SYSTEM [Suspect]
     Active Substance: FENTANYL
     Dosage: 100 MCG/HR
     Route: 062
     Dates: start: 2005, end: 201702
  3. METHADONE [Suspect]
     Active Substance: METHADONE HYDROCHLORIDE
     Dosage: 30 MG, TID
     Route: 048
     Dates: start: 1994, end: 201703
  4. FENTANYL TRANSDERMAL SYSTEM [Suspect]
     Active Substance: FENTANYL
     Indication: CANCER PAIN
     Dosage: 75 MCG/HR, Q72HR
     Route: 062
     Dates: start: 201702

REACTIONS (4)
  - Therapy cessation [Recovered/Resolved]
  - Drug withdrawal syndrome [Unknown]
  - Product adhesion issue [Unknown]
  - Drug dispensing error [Recovered/Resolved]

NARRATIVE: CASE EVENT DATE: 2008
